FAERS Safety Report 16474978 (Version 1)
Quarter: 2019Q2

REPORT INFORMATION
  Report Type: Spontaneous
  Country: IT (occurrence: IT)
  Receive Date: 20190625
  Receipt Date: 20190625
  Transmission Date: 20190711
  Serious: Yes (Other)
  Sender: FDA-Public Use
  Company Number: IT-BAUSCH-BL-2019-017593

PATIENT
  Age: 59 Year
  Sex: Male

DRUGS (5)
  1. THALIDOMIDE [Suspect]
     Active Substance: THALIDOMIDE
     Indication: PLASMA CELL MYELOMA
     Route: 065
     Dates: start: 201710, end: 201712
  2. VELCADE [Suspect]
     Active Substance: BORTEZOMIB
     Indication: PLASMA CELL MYELOMA
     Dosage: DOSAGE FORM: LYOPHILIZED POWDER
     Route: 065
     Dates: start: 201710, end: 201712
  3. DEXAMETHASONE. [Suspect]
     Active Substance: DEXAMETHASONE
     Route: 065
     Dates: start: 201710, end: 201712
  4. VELCADE [Suspect]
     Active Substance: BORTEZOMIB
     Dosage: DOSAGE FORM: LYOPHILIZED POWDER, 1 (UNSPECIFIED UNIT)
     Route: 065
     Dates: start: 201801, end: 201804
  5. DEXAMETHASONE. [Suspect]
     Active Substance: DEXAMETHASONE
     Indication: PLASMA CELL MYELOMA
     Dosage: 1 (UNSPECIFIED UNIT)
     Route: 065
     Dates: start: 201801, end: 201804

REACTIONS (2)
  - Cerebellar stroke [Unknown]
  - Vertebral artery aneurysm [Unknown]
